FAERS Safety Report 6816809-0 (Version None)
Quarter: 2010Q3

REPORT INFORMATION
  Report Type: 
  Country: None (occurrence: None)
  Receive Date: 20100706
  Receipt Date: 20100622
  Transmission Date: 20110219
  Serious: Yes (Hospitalization)
  Sender: FDA-Public Use
  Company Number: US-ELI_LILLY_AND_COMPANY-US201006006386

PATIENT
  Sex: Female

DRUGS (6)
  1. FORTEO [Suspect]
     Indication: OSTEOPOROSIS
     Dosage: 20 UG, DAILY (1/D)
  2. DILANTIN [Concomitant]
     Dosage: 230 MG, DAILY (1/D)
  3. DIPYRIDAMOLE [Concomitant]
     Dosage: 75 MG, DAILY (1/D)
  4. ASPIRIN [Concomitant]
     Dosage: UNK, DAILY (1/D)
  5. VITAMIN D [Concomitant]
     Dosage: 2000 MG, DAILY (1/D)
  6. CALCIUM CARBONATE [Concomitant]
     Dosage: 1000 MG, DAILY (1/D)

REACTIONS (3)
  - CATARACT [None]
  - INTESTINAL OBSTRUCTION [None]
  - VISION BLURRED [None]
